FAERS Safety Report 20762378 (Version 4)
Quarter: 2022Q4

REPORT INFORMATION
  Report Type: Report from Study
  Country: US (occurrence: US)
  Receive Date: 20220428
  Receipt Date: 20221007
  Transmission Date: 20230113
  Serious: No
  Sender: FDA-Public Use
  Company Number: US-NOVARTISTESTPH-NVSC2022US097512

PATIENT
  Age: 61 Year
  Sex: Female

DRUGS (2)
  1. COSENTYX [Suspect]
     Active Substance: SECUKINUMAB
     Indication: Psoriasis
     Dosage: 300 MG, QW
     Route: 058
     Dates: start: 20220425
  2. COSENTYX [Suspect]
     Active Substance: SECUKINUMAB
     Dosage: 300 MG, QMO
     Route: 058
     Dates: start: 20220719, end: 20220719

REACTIONS (9)
  - Headache [Unknown]
  - Ocular discomfort [Unknown]
  - Dyspnoea [Unknown]
  - Mouth swelling [Recovered/Resolved]
  - Pharyngeal swelling [Recovered/Resolved]
  - Oral mucosal blistering [Recovered/Resolved]
  - Nasal dryness [Recovered/Resolved]
  - Dry eye [Recovered/Resolved]
  - Hypersensitivity [Unknown]

NARRATIVE: CASE EVENT DATE: 20220719
